FAERS Safety Report 5937425-9 (Version None)
Quarter: 2008Q4

REPORT INFORMATION
  Report Type: 
  Country: None (occurrence: None)
  Receive Date: 20081031
  Receipt Date: 20081024
  Transmission Date: 20090506
  Serious: Yes (Hospitalization)
  Sender: FDA-Public Use
  Company Number: A0718697A

PATIENT
  Age: 51 Year
  Sex: Female
  Weight: 95.5 kg

DRUGS (3)
  1. AVANDIA [Suspect]
     Dosage: 4MG PER DAY
     Route: 065
     Dates: start: 20020513, end: 20080301
  2. AVANDAMET [Suspect]
     Dates: start: 20020513, end: 20070731
  3. AVANDARYL [Suspect]
     Dates: start: 20020513, end: 20070731

REACTIONS (1)
  - MYOCARDIAL INFARCTION [None]
